FAERS Safety Report 23455689 (Version 4)
Quarter: 2024Q1

REPORT INFORMATION
  Report Type: Spontaneous
  Country: KR (occurrence: KR)
  Receive Date: 20240130
  Receipt Date: 20240307
  Transmission Date: 20240410
  Serious: Yes (Hospitalization, Other)
  Sender: FDA-Public Use
  Company Number: KR-Accord-403338

PATIENT
  Age: 71 Year
  Sex: Male
  Weight: 56.8 kg

DRUGS (35)
  1. CARBOPLATIN [Suspect]
     Active Substance: CARBOPLATIN
     Indication: Non-small cell lung cancer metastatic
     Dosage: 5AUC, 1Q3W
     Route: 042
     Dates: start: 20230824, end: 20231102
  2. PEMETREXED [Suspect]
     Active Substance: PEMETREXED
     Indication: Non-small cell lung cancer metastatic
     Dosage: 1Q3W
     Route: 042
     Dates: start: 20230824, end: 20231205
  3. PEMBROLIZUMAB [Concomitant]
     Active Substance: PEMBROLIZUMAB
     Indication: Non-small cell lung cancer metastatic
     Dosage: 1Q3W
     Route: 042
     Dates: start: 20230824, end: 20231205
  4. NETUPITANT\PALONOSETRON HYDROCHLORIDE [Concomitant]
     Active Substance: NETUPITANT\PALONOSETRON HYDROCHLORIDE
     Dates: start: 20230824
  5. CELECOXIB [Concomitant]
     Active Substance: CELECOXIB
     Dates: start: 20230814
  6. EPINASTINE HYDROCHLORIDE [Concomitant]
     Active Substance: EPINASTINE HYDROCHLORIDE
     Dates: start: 20230904
  7. FOLIC ACID [Concomitant]
     Active Substance: FOLIC ACID
     Dates: start: 20230814
  8. CYANOCOBALAMIN [Concomitant]
     Active Substance: CYANOCOBALAMIN
     Dates: start: 20230814
  9. DEXAMETHASONE [Concomitant]
     Active Substance: DEXAMETHASONE
     Dates: start: 20230824
  10. CIMETIDINE [Concomitant]
     Active Substance: CIMETIDINE
     Dates: start: 20230824
  11. CHLORPHENIRAMINE MALEATE [Concomitant]
     Active Substance: CHLORPHENIRAMINE MALEATE
     Dates: start: 20230824
  12. DESONIDE [Concomitant]
     Active Substance: DESONIDE
     Dates: start: 20230904
  13. HYDROCORTISONE [Concomitant]
     Active Substance: HYDROCORTISONE
     Dates: start: 20230829
  14. ACETAMINOPHEN [Concomitant]
     Active Substance: ACETAMINOPHEN
     Dates: start: 20231006
  15. METFORMIN, TENELIGLIPTIN [Concomitant]
     Dates: start: 20230922, end: 20240107
  16. DICLOFENAC [Concomitant]
     Active Substance: DICLOFENAC
     Dates: start: 20231010
  17. URSODIOL [Concomitant]
     Active Substance: URSODIOL
     Dates: start: 20231123
  18. MAGNESIUM OXIDE [Concomitant]
     Active Substance: MAGNESIUM OXIDE
     Dates: start: 20231205, end: 20240107
  19. LACTULOSE [Concomitant]
     Active Substance: LACTULOSE
     Dates: start: 20231205, end: 20240107
  20. PREDNISOLONE [Concomitant]
     Active Substance: PREDNISOLONE
     Dates: start: 20231205, end: 20240101
  21. AMINO ACIDS NOS/FATS NOS/GLUCOSE [Concomitant]
     Dates: start: 20230824
  22. PANTOPRAZOLE [Concomitant]
     Active Substance: PANTOPRAZOLE
     Dates: start: 20240108, end: 20240115
  23. METFORMIN HYDROCHLORIDE [Concomitant]
     Active Substance: METFORMIN HYDROCHLORIDE
     Dates: start: 20240109
  24. FURSULTIAMINE [Concomitant]
     Active Substance: FURSULTIAMINE
     Dates: start: 20240108
  25. ALBUMIN HUMAN [Concomitant]
     Active Substance: ALBUMIN HUMAN
     Dates: start: 20240108, end: 20240108
  26. CALCIUM GLUCONATE [Concomitant]
     Active Substance: CALCIUM GLUCONATE
     Dates: start: 20240108, end: 20240108
  27. GINKGO [Concomitant]
     Active Substance: GINKGO
     Dates: start: 20231226
  28. GARLIC [Concomitant]
     Active Substance: GARLIC
     Dosage: OIL
     Dates: start: 20231212, end: 20240107
  29. MAGNESIUM SULFATE [Concomitant]
     Active Substance: MAGNESIUM SULFATE\MAGNESIUM SULFATE HEPTAHYDRATE
     Dates: start: 20240108, end: 20240110
  30. METOCLOPRAMIDE [Concomitant]
     Active Substance: METOCLOPRAMIDE
     Dates: start: 20240111
  31. TRAMADOL HYDROCHLORIDE [Concomitant]
     Active Substance: TRAMADOL HYDROCHLORIDE
     Dates: start: 20240112
  32. PIROXICAM [Concomitant]
     Active Substance: PIROXICAM
     Dates: start: 20240114
  33. LORAZEPAM [Concomitant]
     Active Substance: LORAZEPAM
     Dates: start: 20240115, end: 20240115
  34. SODIUM CHLORIDE [Concomitant]
     Active Substance: SODIUM CHLORIDE
     Dates: start: 20240116, end: 20240116
  35. TEGOPRAZAN [Concomitant]
     Active Substance: TEGOPRAZAN
     Dates: start: 20230814

REACTIONS (1)
  - Pneumocystis jirovecii pneumonia [Recovered/Resolved]

NARRATIVE: CASE EVENT DATE: 20240108
